FAERS Safety Report 15029027 (Version 3)
Quarter: 2018Q3

REPORT INFORMATION
  Report Type: Spontaneous
  Country: FR (occurrence: FR)
  Receive Date: 20180619
  Receipt Date: 20180706
  Transmission Date: 20181010
  Serious: Yes (Other)
  Sender: FDA-Public Use
  Company Number: FR-EMD SERONO-9031190

PATIENT
  Age: 5 Year
  Sex: Female

DRUGS (2)
  1. SAIZEN [Suspect]
     Active Substance: SOMATROPIN
     Indication: GROWTH HORMONE DEFICIENCY
     Dates: start: 20180524
  2. SAIZEN [Suspect]
     Active Substance: SOMATROPIN
     Indication: LEIOMYOMA

REACTIONS (7)
  - Drug abuse [Unknown]
  - Dizziness [Unknown]
  - Off label use [Unknown]
  - Headache [Unknown]
  - Injection site pain [Unknown]
  - Drug dose omission [Unknown]
  - Product storage error [Recovered/Resolved]

NARRATIVE: CASE EVENT DATE: 2018
